FAERS Safety Report 20391060 (Version 1)
Quarter: 2022Q1

REPORT INFORMATION
  Report Type: Spontaneous
  Country: US (occurrence: None)
  Receive Date: 20220127
  Receipt Date: 20220127
  Transmission Date: 20220423
  Serious: No
  Sender: FDA-Public Use
  Company Number: None

PATIENT
  Age: 81 Year
  Sex: Male
  Weight: 94.05 kg

DRUGS (12)
  1. ERLEADA [Suspect]
     Active Substance: APALUTAMIDE
     Indication: Prostate cancer
     Dosage: FREQUENCY : DAILY;?
     Route: 048
     Dates: start: 20210302
  2. ALPRAZOLAM [Concomitant]
     Active Substance: ALPRAZOLAM
  3. ATENOLOL [Concomitant]
     Active Substance: ATENOLOL
  4. Calcium-Vitamin D 600mg-800IU [Concomitant]
  5. FAMOTIDINE [Concomitant]
     Active Substance: FAMOTIDINE
  6. LOSARTAN [Concomitant]
     Active Substance: LOSARTAN
  7. METFORMIN HYDROCHLORIDE [Concomitant]
     Active Substance: METFORMIN HYDROCHLORIDE
  8. TRAMADOL [Concomitant]
     Active Substance: TRAMADOL
  9. Vitamin C 500mg [Concomitant]
  10. Vitamin D 1.25mg [Concomitant]
  11. Zinc 30mg [Concomitant]
  12. HYDROCHLOROTHIAZIDE [Concomitant]
     Active Substance: HYDROCHLOROTHIAZIDE

REACTIONS (1)
  - Epistaxis [None]

NARRATIVE: CASE EVENT DATE: 20220127
